FAERS Safety Report 25707567 (Version 1)
Quarter: 2025Q3

REPORT INFORMATION
  Report Type: Spontaneous
  Country: US (occurrence: US)
  Receive Date: 20250820
  Receipt Date: 20250820
  Transmission Date: 20251021
  Serious: Yes (Hospitalization, Other)
  Sender: B. BRAUN MEDICAL INC.
  Company Number: US-B. Braun Medical Inc.-US-BBM-202503256

PATIENT
  Age: 37 Year
  Sex: Female

DRUGS (6)
  1. CEFUROXIME [Suspect]
     Active Substance: CEFUROXIME
  2. METHADONE [Suspect]
     Active Substance: METHADONE HYDROCHLORIDE
  3. FLUOXETINE [Suspect]
     Active Substance: FLUOXETINE HYDROCHLORIDE
  4. ALCOHOL [Suspect]
     Active Substance: ALCOHOL
  5. CLONAZEPAM [Suspect]
     Active Substance: CLONAZEPAM
  6. BENZONATATE [Suspect]
     Active Substance: BENZONATATE

REACTIONS (3)
  - Coma [Unknown]
  - Dysarthria [Unknown]
  - Lethargy [Unknown]
